FAERS Safety Report 10022043 (Version 1)
Quarter: 2013Q4

REPORT INFORMATION
  Report Type: Spontaneous
  Country: CA (occurrence: None)
  Receive Date: 20131211
  Receipt Date: 20131211
  Transmission Date: 20140711
  Serious: Yes (Hospitalization)
  Sender: FDA-Public Use
  Company Number: UTC-021860

PATIENT
  Age: 66 Year
  Sex: Male

DRUGS (2)
  1. REMODULIN [Suspect]
     Indication: PULMONARY ARTERIAL HYPERTENSION
     Dosage: 1 IN 1 MIN, SUBCUTANEOUS
     Route: 058
     Dates: start: 20120530
  2. REMODULIN [Suspect]
     Indication: PULMONARY ARTERIAL HYPERTENSION
     Dosage: 1 IN 1 MIN, SUBCUTANEOUS
     Route: 058
     Dates: start: 20120530

REACTIONS (3)
  - Fluid retention [None]
  - Faeces discoloured [None]
  - Hepatic enzyme increased [None]
